FAERS Safety Report 5167249-4 (Version None)
Quarter: 2006Q4

REPORT INFORMATION
  Report Type: 
  Country: None (occurrence: None)
  Receive Date: 20061207
  Receipt Date: 20061204
  Transmission Date: 20070319
  Serious: Yes (Other)
  Sender: FDA-Public Use
  Company Number: US-ROXANE LABORATORIES, INC-2006-DE-06454GD

PATIENT
  Age: 41 Year
  Sex: Male

DRUGS (3)
  1. PREDNISONE TAB [Suspect]
     Indication: SARCOIDOSIS
  2. PREDNISONE TAB [Suspect]
  3. METHOTREXATE [Suspect]
     Indication: SARCOIDOSIS

REACTIONS (1)
  - DRUG INEFFECTIVE [None]
